FAERS Safety Report 4471988-8 (Version None)
Quarter: 2004Q4

REPORT INFORMATION
  Report Type: 
  Country: None (occurrence: None)
  Receive Date: 20041007
  Receipt Date: 20040922
  Transmission Date: 20050328
  Serious: Yes (Hospitalization)
  Sender: FDA-Public Use
  Company Number: ST-2004-008089

PATIENT
  Age: 77 Year
  Sex: Female

DRUGS (5)
  1. OLMETEC (OLMESARTAN  MEDOXOMIL) [Suspect]
     Indication: HYPERTENSION
     Dosage: 20 MG QD PO
     Route: 048
     Dates: start: 20040601, end: 20040913
  2. NIVADIL [Concomitant]
  3. AMLODIN [Concomitant]
  4. CHLOPOLYZIN [Concomitant]
  5. GASMOTIN [Concomitant]

REACTIONS (2)
  - FEELING ABNORMAL [None]
  - RENAL FAILURE ACUTE [None]
